FAERS Safety Report 18932605 (Version 2)
Quarter: 2021Q1

REPORT INFORMATION
  Report Type: Spontaneous
  Country: US (occurrence: US)
  Receive Date: 20210224
  Receipt Date: 20210311
  Transmission Date: 20210420
  Serious: Yes (Hospitalization, Other)
  Sender: FDA-Public Use
  Company Number: US-009507513-2102USA007628

PATIENT
  Age: 68 Year
  Sex: Male

DRUGS (1)
  1. KEYTRUDA [Suspect]
     Active Substance: PEMBROLIZUMAB
     Indication: NEUROENDOCRINE CARCINOMA OF THE SKIN
     Dosage: UNK

REACTIONS (6)
  - Granuloma skin [Unknown]
  - Infection [Unknown]
  - Immune-mediated enterocolitis [Unknown]
  - Immune-mediated myositis [Recovering/Resolving]
  - Immune thrombocytopenia [Unknown]
  - Immune-mediated encephalitis [Recovering/Resolving]
